FAERS Safety Report 8340384-5 (Version None)
Quarter: 2012Q2

REPORT INFORMATION
  Report Type: 
  Country: None (occurrence: None)
  Receive Date: 20120507
  Receipt Date: 20120501
  Transmission Date: 20120825
  Serious: No
  Sender: FDA-Public Use
  Company Number: US-PFIZER INC-2012092264

PATIENT
  Sex: Female

DRUGS (2)
  1. LATANOPROST [Suspect]
     Indication: GLAUCOMA
     Dosage: UNK, ONCE A DAY
     Route: 047
     Dates: start: 20120215
  2. ALLERGAN PROTEIN [Suspect]
     Dosage: UNK

REACTIONS (9)
  - NASOPHARYNGITIS [None]
  - NAUSEA [None]
  - COUGH [None]
  - FEELING ABNORMAL [None]
  - HYPERSENSITIVITY [None]
  - UPPER RESPIRATORY TRACT INFECTION [None]
  - MALAISE [None]
  - DRY EYE [None]
  - RHINORRHOEA [None]
